FAERS Safety Report 16886351 (Version 1)
Quarter: 2019Q4

REPORT INFORMATION
  Report Type: Spontaneous
  Country: EG (occurrence: EG)
  Receive Date: 20191004
  Receipt Date: 20191004
  Transmission Date: 20200122
  Serious: Yes (Other)
  Sender: FDA-Public Use
  Company Number: EG-HIKMA PHARMACEUTICALS USA INC.-EG-H14001-19-05203

PATIENT
  Age: 70 Year
  Sex: Female

DRUGS (4)
  1. CYCRAM [Suspect]
     Active Substance: CYCLOPHOSPHAMIDE
     Indication: LYMPHOMA
     Route: 042
  2. ADRICIN (DOXORUBICIN) [Suspect]
     Active Substance: DOXORUBICIN
     Indication: LYMPHOMA
     Route: 042
  3. VINRACINE [Suspect]
     Active Substance: VINCRISTINE SULFATE
     Indication: LYMPHOMA
     Route: 042
  4. PREDNISOLONE. [Concomitant]
     Active Substance: PREDNISOLONE
     Indication: PRODUCT USED FOR UNKNOWN INDICATION
     Route: 065

REACTIONS (1)
  - Anaemia [Recovered/Resolved]
